FAERS Safety Report 4659336-1 (Version None)
Quarter: 2005Q2

REPORT INFORMATION
  Report Type: 
  Country: None (occurrence: None)
  Receive Date: 20050511
  Receipt Date: 20050502
  Transmission Date: 20051028
  Serious: Yes (Disabling)
  Sender: FDA-Public Use
  Company Number: FR-BRISTOL-MYERS SQUIBB COMPANY-12954756

PATIENT
  Sex: Male

DRUGS (3)
  1. BUSPAR [Suspect]
     Route: 064
  2. XANAX [Suspect]
     Route: 064
  3. SEROPRAM [Suspect]
     Route: 064

REACTIONS (5)
  - EPIPHYSES DELAYED FUSION [None]
  - MULTIPLE CONGENITAL ABNORMALITIES [None]
  - PIERRE ROBIN SYNDROME [None]
  - PREGNANCY [None]
  - TALIPES [None]
